FAERS Safety Report 13496105 (Version 1)
Quarter: 2017Q2

REPORT INFORMATION
  Report Type: Spontaneous
  Country: MX (occurrence: MX)
  Receive Date: 20170428
  Receipt Date: 20170428
  Transmission Date: 20170830
  Serious: Yes (Other)
  Sender: FDA-Public Use
  Company Number: MX-PFIZER INC-2017185846

PATIENT
  Age: 83 Year
  Sex: Female

DRUGS (1)
  1. ALTRULINE [Suspect]
     Active Substance: SERTRALINE HYDROCHLORIDE
     Dosage: UNK

REACTIONS (2)
  - Deafness [Not Recovered/Not Resolved]
  - Memory impairment [Not Recovered/Not Resolved]
